FAERS Safety Report 8926007 (Version 1)
Quarter: 2012Q4

REPORT INFORMATION
  Report Type: Report from Study
  Country: US (occurrence: US)
  Receive Date: 20121126
  Receipt Date: 20121126
  Transmission Date: 20130627
  Serious: Yes (Other)
  Sender: FDA-Public Use
  Company Number: US-ABBOTT-12P-163-1010367-00

PATIENT
  Sex: Female
  Weight: 42.68 kg

DRUGS (6)
  1. HUMIRA [Suspect]
     Indication: CROHN^S DISEASE
     Route: 058
     Dates: start: 201202
  2. PREDNISONE [Suspect]
     Indication: CROHN^S DISEASE
     Dosage: 12.5 mg per day
  3. METROPOLOL [Concomitant]
     Indication: HYPERTENSION
  4. UNKNOWN MEDICATION [Concomitant]
     Indication: OSTEOPOROSIS
  5. LOMITIL [Concomitant]
     Indication: CROHN^S DISEASE
  6. CELEXA [Concomitant]
     Indication: DEPRESSION

REACTIONS (3)
  - Renal failure [Not Recovered/Not Resolved]
  - Blood creatinine increased [Not Recovered/Not Resolved]
  - Blood potassium increased [Not Recovered/Not Resolved]
